APPROVED DRUG PRODUCT: FAMOTIDINE
Active Ingredient: FAMOTIDINE
Strength: 20MG
Dosage Form/Route: TABLET;ORAL
Application: A217669 | Product #001 | TE Code: AB
Applicant: CONTRACT PHARMACAL CORP
Approved: Dec 20, 2023 | RLD: No | RS: No | Type: RX